FAERS Safety Report 25175941 (Version 3)
Quarter: 2025Q2

REPORT INFORMATION
  Report Type: Report from Study
  Country: US (occurrence: US)
  Receive Date: 20250409
  Receipt Date: 20250611
  Transmission Date: 20250717
  Serious: Yes (Hospitalization, Other)
  Sender: ABBVIE
  Company Number: US-ABBVIE-6168330

PATIENT
  Age: 27 Year
  Sex: Male
  Weight: 69.399 kg

DRUGS (3)
  1. RINVOQ [Suspect]
     Active Substance: UPADACITINIB
     Indication: Crohn^s disease
     Dosage: FORM STRENGTH: 30 MILLIGRAMS
     Route: 048
     Dates: start: 20240823
  2. RINVOQ [Suspect]
     Active Substance: UPADACITINIB
     Indication: Crohn^s disease
     Route: 048
  3. RINVOQ [Suspect]
     Active Substance: UPADACITINIB
     Indication: Crohn^s disease
     Route: 048

REACTIONS (6)
  - Abdominal abscess [Recovered/Resolved]
  - Abdominal abscess [Recovering/Resolving]
  - Pain [Unknown]
  - Gastrointestinal inflammation [Unknown]
  - Gastrointestinal fistula [Unknown]
  - Malaise [Unknown]

NARRATIVE: CASE EVENT DATE: 20250101
